FAERS Safety Report 5340743-9 (Version None)
Quarter: 2007Q2

REPORT INFORMATION
  Report Type: 
  Country: None (occurrence: None)
  Receive Date: 20070405
  Receipt Date: 20061205
  Transmission Date: 20071010
  Serious: No
  Sender: FDA-Public Use
  Company Number: US200612001602

PATIENT
  Age: 47 Year
  Sex: Female

DRUGS (2)
  1. CYMBALTA [Suspect]
     Indication: ANXIETY
     Dosage: 60 MG
     Dates: start: 20040101
  2. MINERAL SUPPLEMENTS [Concomitant]

REACTIONS (2)
  - ORGASM ABNORMAL [None]
  - SYSTEMIC LUPUS ERYTHEMATOSUS [None]
